FAERS Safety Report 9681125 (Version 1)
Quarter: 2013Q4

REPORT INFORMATION
  Report Type: Report from Study
  Country: US (occurrence: US)
  Receive Date: 20131111
  Receipt Date: 20131111
  Transmission Date: 20140711
  Serious: Yes (Death)
  Sender: FDA-Public Use
  Company Number: US-B.I. PHARMACEUTICALS,INC./RIDGEFIELD-2013-BI-35717GD

PATIENT
  Sex: Male

DRUGS (4)
  1. CLONIDINE [Suspect]
  2. METHYLPHENIDATE ER [Suspect]
  3. BUPROPION SR [Suspect]
  4. MELATONIN [Suspect]

REACTIONS (1)
  - Death [Fatal]
